FAERS Safety Report 8055647-0 (Version None)
Quarter: 2012Q1

REPORT INFORMATION
  Report Type: 
  Country: None (occurrence: None)
  Receive Date: 20120119
  Receipt Date: 20120111
  Transmission Date: 20120608
  Serious: Yes (Hospitalization)
  Sender: FDA-Public Use
  Company Number: CA-JNJFOC-20120103088

PATIENT
  Sex: Male
  Weight: 80 kg

DRUGS (13)
  1. CLOBETASOL PROPIONATE [Concomitant]
     Route: 065
  2. ASPIRIN [Concomitant]
     Route: 048
  3. REMICADE [Suspect]
     Indication: COLITIS ULCERATIVE
     Route: 042
     Dates: start: 20111116
  4. TRAZODONE HYDROCHLORIDE [Concomitant]
     Route: 065
     Dates: end: 20110901
  5. CRESTOR [Concomitant]
     Route: 048
  6. REMICADE [Suspect]
     Route: 042
     Dates: start: 20120111
  7. REMICADE [Suspect]
     Route: 042
     Dates: start: 20080101
  8. BISOPROLOL FUMARATE [Concomitant]
     Route: 065
  9. IMURAN [Concomitant]
     Route: 065
  10. AMLODIPINE [Concomitant]
     Route: 065
     Dates: end: 20111213
  11. PERIDEX [Concomitant]
     Route: 048
  12. ZOPICLONE [Concomitant]
     Route: 065
  13. MESALAMINE [Concomitant]
     Route: 048

REACTIONS (1)
  - PANCREATITIS [None]
